FAERS Safety Report 5513980-8 (Version None)
Quarter: 2007Q4

REPORT INFORMATION
  Report Type: 
  Country: None (occurrence: None)
  Receive Date: 20071113
  Receipt Date: 20071105
  Transmission Date: 20080405
  Serious: Yes (Hospitalization)
  Sender: FDA-Public Use
  Company Number: ES-BAYER-200716664GDS

PATIENT
  Age: 33 Year
  Sex: Female

DRUGS (1)
  1. ADALAT [Suspect]
     Indication: PREMATURE LABOUR
     Dosage: TOTAL DAILY DOSE: 40 MG  UNIT DOSE: 10 MG
     Route: 048
     Dates: start: 20070101

REACTIONS (1)
  - BRADYCARDIA FOETAL [None]
